FAERS Safety Report 4507789-1 (Version None)
Quarter: 2004Q4

REPORT INFORMATION
  Report Type: 
  Country: None (occurrence: None)
  Receive Date: 20041123
  Receipt Date: 20041020
  Transmission Date: 20050328
  Serious: Yes (Hospitalization, Other)
  Sender: FDA-Public Use
  Company Number: PHBS2004IT14236

PATIENT
  Age: 63 Year
  Sex: Male

DRUGS (3)
  1. HYDROCHLOROTHIAZIDE [Suspect]
  2. LISINOPRIL [Suspect]
  3. QUINIDINE HCL [Concomitant]

REACTIONS (16)
  - ABDOMINAL PAIN UPPER [None]
  - ASCITES [None]
  - BLOOD AMYLASE INCREASED [None]
  - BLOOD GLUCOSE INCREASED [None]
  - C-REACTIVE PROTEIN INCREASED [None]
  - CANDIDIASIS [None]
  - FLATULENCE [None]
  - LIPASE INCREASED [None]
  - NAUSEA [None]
  - PANCREATIC NECROSIS [None]
  - PANCREATITIS ACUTE [None]
  - PYREXIA [None]
  - STAPHYLOCOCCAL SEPSIS [None]
  - SUPERINFECTION [None]
  - VOMITING [None]
  - WHITE BLOOD CELL COUNT INCREASED [None]
